FAERS Safety Report 5339468-5 (Version None)
Quarter: 2007Q2

REPORT INFORMATION
  Report Type: 
  Country: None (occurrence: None)
  Receive Date: 20070404
  Receipt Date: 20060626
  Transmission Date: 20071010
  Serious: Yes (Other)
  Sender: FDA-Public Use
  Company Number: 2006059947

PATIENT
  Age: 55 Year
  Sex: Male

DRUGS (2)
  1. GEODON [Suspect]
     Indication: SCHIZOPHRENIA, PARANOID TYPE
     Dosage: 80 MG (2 IN 1 D) ORAL
     Route: 048
     Dates: start: 20060322
  2. HALDOL SOLUTAB [Suspect]
     Indication: ILL-DEFINED DISORDER
     Dosage: 200 MG, UNKNOWN, INTRAMUSCULAR
     Route: 030
     Dates: start: 20050101

REACTIONS (2)
  - CONDITION AGGRAVATED [None]
  - NEUROLEPTIC MALIGNANT SYNDROME [None]
